FAERS Safety Report 8493845-2 (Version None)
Quarter: 2012Q3

REPORT INFORMATION
  Report Type: 
  Country: None (occurrence: None)
  Receive Date: 20120706
  Receipt Date: 20120628
  Transmission Date: 20120928
  Serious: Yes (Hospitalization)
  Sender: FDA-Public Use
  Company Number: US-B.I. PHARMACEUTICALS,INC./RIDGEFIELD-2012-EU-03374GD

PATIENT
  Age: 64 Year
  Sex: Female

DRUGS (4)
  1. MAGNESIUM CITRATE [Suspect]
     Indication: CONSTIPATION
     Dosage: ONE 10-OUNCE BOTTLE
  2. SENNA-CONTAINING LAXATIVE [Suspect]
     Indication: CONSTIPATION
     Route: 048
  3. BISACODYL [Suspect]
     Indication: CONSTIPATION
     Route: 054
  4. SODIUM BIPHOSPHATE [Suspect]
     Indication: CONSTIPATION
     Route: 054

REACTIONS (1)
  - DRUG INEFFECTIVE [None]
